FAERS Safety Report 15121479 (Version 1)
Quarter: 2018Q3

REPORT INFORMATION
  Report Type: Spontaneous
  Country: US (occurrence: US)
  Receive Date: 20180613
  Receipt Date: 20180613
  Transmission Date: 20181010
  Serious: No
  Sender: FDA-Public Use
  Company Number: None

PATIENT

DRUGS (2)
  1. SPS SUSPENSION (SODIUM POLYSTYRENE SULFONATE) [Suspect]
     Active Substance: SODIUM POLYSTYRENE SULFONATE
     Dosage: ?          OTHER STRENGTH:15/60 G/ML;?
  2. CAROSPIR [Suspect]
     Active Substance: SPIRONOLACTONE

REACTIONS (3)
  - Product name confusion [None]
  - Product barcode issue [None]
  - Incorrect dose administered [None]
